FAERS Safety Report 4706767-7 (Version None)
Quarter: 2005Q2

REPORT INFORMATION
  Report Type: 
  Country: None (occurrence: None)
  Receive Date: 20050629
  Receipt Date: 20050301
  Transmission Date: 20051028
  Serious: No
  Sender: FDA-Public Use
  Company Number: 05P-163-0292444-00

PATIENT
  Age: 65 Year
  Sex: Female
  Weight: 62.5964 kg

DRUGS (3)
  1. HUMIRA [Suspect]
     Indication: RHEUMATOID ARTHRITIS
     Dosage: 40 MG, 1 IN 2 WK, SUBCUTANEOUS
     Route: 058
     Dates: start: 20041201, end: 20050101
  2. PREDNISONE TAB [Concomitant]
  3. BENICAR [Concomitant]

REACTIONS (4)
  - BRONCHITIS [None]
  - DIABETES MELLITUS NON-INSULIN-DEPENDENT [None]
  - INFLUENZA [None]
  - NEUROPATHY [None]
